FAERS Safety Report 9977056 (Version 1)
Quarter: 2014Q1

REPORT INFORMATION
  Report Type: Report from Study
  Country: US (occurrence: US)
  Receive Date: 20140306
  Receipt Date: 20140306
  Transmission Date: 20141002
  Serious: Yes (Hospitalization)
  Sender: FDA-Public Use
  Company Number: US-ABBVIE-13P-163-1168464-00

PATIENT
  Age: 46 Year
  Sex: Female

DRUGS (5)
  1. HUMIRA [Suspect]
     Indication: RHEUMATOID ARTHRITIS
  2. METHOTREXATE [Concomitant]
     Indication: PRODUCT USED FOR UNKNOWN INDICATION
     Dosage: EVERY WEDNESDAY
  3. LYRICA [Concomitant]
     Indication: PRODUCT USED FOR UNKNOWN INDICATION
  4. UNKNOWN MEDICATION [Concomitant]
     Indication: MUSCLE SPASMS
  5. UNKNOWN MEDICATION [Concomitant]
     Indication: MUSCLE SPASMS

REACTIONS (5)
  - Rheumatoid arthritis [Not Recovered/Not Resolved]
  - Chest pain [Recovered/Resolved]
  - Injection site urticaria [Unknown]
  - Injection site pruritus [Unknown]
  - Local swelling [Unknown]
